FAERS Safety Report 10328829 (Version 7)
Quarter: 2014Q4

REPORT INFORMATION
  Report Type: Report from Study
  Country: US (occurrence: US)
  Receive Date: 20140721
  Receipt Date: 20141120
  Transmission Date: 20150528
  Serious: Yes (Hospitalization, Other)
  Sender: FDA-Public Use
  Company Number: US-ALEXION PHARMACEUTICALS INC.-A201402815

PATIENT

DRUGS (1)
  1. SOLIRIS [Suspect]
     Active Substance: ECULIZUMAB
     Indication: HAEMOLYTIC URAEMIC SYNDROME
     Dosage: 1200 MG, Q2W
     Route: 042
     Dates: start: 20140516

REACTIONS (13)
  - Haemoglobin abnormal [Unknown]
  - Dehydration [Recovered/Resolved]
  - Vomiting [Recovered/Resolved]
  - Malaise [Recovered/Resolved]
  - Clostridium difficile infection [Unknown]
  - Erythema [Unknown]
  - Abdominal pain [Unknown]
  - Nausea [Recovered/Resolved]
  - Asthenia [Unknown]
  - Vomiting [Recovered/Resolved]
  - Central venous catheterisation [Recovered/Resolved]
  - Hypokalaemia [Unknown]
  - Pyrexia [Unknown]

NARRATIVE: CASE EVENT DATE: 20140710
